FAERS Safety Report 9115278 (Version 2)
Quarter: 2013Q1

REPORT INFORMATION
  Report Type: Spontaneous
  Country: DE (occurrence: DE)
  Receive Date: 20130225
  Receipt Date: 20130307
  Transmission Date: 20140127
  Serious: No
  Sender: FDA-Public Use
  Company Number: DE-ASTRAZENECA-2013SE11347

PATIENT
  Age: 55 Year
  Sex: Female

DRUGS (1)
  1. ASCOTOP [Suspect]
     Indication: MIGRAINE
     Dosage: FREQUENCY- ON AN AVERAGE THREE TIMES A WEEK
     Route: 045

REACTIONS (1)
  - Transverse sinus thrombosis [Unknown]
